FAERS Safety Report 7825558 (Version 4)
Quarter: 2018Q3

REPORT INFORMATION
  Report Type: Report from Study
  Country: JP (occurrence: JP)
  Receive Date: 20110224
  Receipt Date: 20180918
  Transmission Date: 20181010
  Serious: Yes (Hospitalization)
  Sender: FDA-Public Use
  Company Number: PHHY2009JP54611

PATIENT
  Age: 61 Year
  Sex: Female

DRUGS (8)
  1. PREDONINE [Concomitant]
     Active Substance: PREDNISOLONE
     Indication: HYPOTHYROIDISM
     Dosage: 10 MG, UNK
     Route: 048
     Dates: start: 20090219
  2. PROTECADIN [Concomitant]
     Active Substance: LAFUTIDINE
     Indication: PROPHYLAXIS
     Dosage: 20 MG, UNK
     Route: 048
     Dates: start: 20090219
  3. TASIGNA [Suspect]
     Active Substance: NILOTINIB
     Indication: CHRONIC MYELOID LEUKAEMIA
     Dosage: 800 MG, QD
     Route: 048
     Dates: start: 20091102, end: 20091105
  4. FLUCONAL [Concomitant]
     Indication: PROPHYLAXIS
     Dosage: 100 MG, UNK
     Route: 048
     Dates: start: 20090317
  5. BAKTAR [Concomitant]
     Active Substance: SULFAMETHOXAZOLE\TRIMETHOPRIM
     Indication: PROPHYLAXIS
     Dosage: 1 DF, UNK
     Route: 048
     Dates: start: 20090219
  6. THYRADIN S [Concomitant]
     Active Substance: LEVOTHYROXINE SODIUM
     Indication: HYPOTHYROIDISM
     Dosage: 100 UG, UNK
     Route: 048
     Dates: start: 20070731
  7. TASIGNA [Suspect]
     Active Substance: NILOTINIB
     Dosage: 400 MG, QD
     Route: 048
     Dates: start: 20091112, end: 20091207
  8. TASIGNA [Suspect]
     Active Substance: NILOTINIB
     Dosage: 200 MG, QD
     Route: 048
     Dates: start: 20100302

REACTIONS (11)
  - Haemoglobin decreased [Recovered/Resolved]
  - White blood cell count decreased [Recovering/Resolving]
  - Amylase increased [Recovered/Resolved]
  - Bone marrow failure [Recovered/Resolved]
  - Anaemia [Recovered/Resolved]
  - Amylase increased [Recovered/Resolved]
  - Platelet count decreased [Recovering/Resolving]
  - Lipase increased [Recovered/Resolved]
  - Pneumonia [Recovered/Resolved]
  - Thrombocytopenia [Recovering/Resolving]
  - Lipase increased [Recovered/Resolved]

NARRATIVE: CASE EVENT DATE: 200911
